FAERS Safety Report 20119276 (Version 1)
Quarter: 2021Q4

REPORT INFORMATION
  Report Type: Spontaneous
  Country: GB (occurrence: None)
  Receive Date: 20211126
  Receipt Date: 20211126
  Transmission Date: 20220304
  Serious: Yes (Hospitalization)
  Sender: FDA-Public Use
  Company Number: GB-ROCHE-2808201

PATIENT
  Age: 80 Year
  Sex: Female

DRUGS (7)
  1. OBINUTUZUMAB [Suspect]
     Active Substance: OBINUTUZUMAB
     Indication: Follicle centre lymphoma, follicular grade I, II, III
     Dosage: C2D1 GAZYVARO??ON 28/OCT/2021, RECEIVED LAST DOSE.
     Route: 042
     Dates: start: 20210401
  2. OBINUTUZUMAB [Suspect]
     Active Substance: OBINUTUZUMAB
     Indication: Follicular lymphoma
     Dosage: CYCLE 3 DAY 1
     Route: 042
     Dates: start: 20200422
  3. OBINUTUZUMAB [Suspect]
     Active Substance: OBINUTUZUMAB
     Dosage: CYCLE 4 DAY 1
     Route: 042
     Dates: start: 20210513
  4. OBINUTUZUMAB [Suspect]
     Active Substance: OBINUTUZUMAB
     Route: 042
     Dates: start: 20210603
  5. CYCLOPHOSPHAMIDE [Concomitant]
     Active Substance: CYCLOPHOSPHAMIDE
  6. VINCRISTINE [Concomitant]
     Active Substance: VINCRISTINE
  7. PREDNISOLONE [Concomitant]
     Active Substance: PREDNISOLONE

REACTIONS (5)
  - Diarrhoea [Unknown]
  - Pyrexia [Unknown]
  - Dehydration [Unknown]
  - Constipation [Unknown]
  - Confusional state [Unknown]

NARRATIVE: CASE EVENT DATE: 20210407
